FAERS Safety Report 10669011 (Version 1)
Quarter: 2014Q4

REPORT INFORMATION
  Report Type: Spontaneous
  Country: IL (occurrence: IL)
  Receive Date: 20141222
  Receipt Date: 20141222
  Transmission Date: 20150529
  Serious: Yes (Other)
  Sender: FDA-Public Use
  Company Number: IL-SA-2014SA173598

PATIENT
  Age: 6 Year
  Sex: Male

DRUGS (6)
  1. TACROLIMUS. [Concomitant]
     Active Substance: TACROLIMUS
  2. RESPRIM [Concomitant]
  3. PREDNISON [Concomitant]
     Active Substance: PREDNISONE
  4. THYMOGLOBULINE [Suspect]
     Active Substance: LAPINE T-LYMPHOCYTE IMMUNE GLOBULIN
     Indication: HEPATIC ENZYME INCREASED
     Dosage: SO FAR 3 DOSES
     Route: 042
     Dates: start: 20141208
  5. CIDOFOVIR. [Concomitant]
     Active Substance: CIDOFOVIR
  6. THYMOGLOBULINE [Suspect]
     Active Substance: LAPINE T-LYMPHOCYTE IMMUNE GLOBULIN
     Indication: HISTIOCYTOSIS HAEMATOPHAGIC
     Dosage: SO FAR 3 DOSES
     Route: 042
     Dates: start: 20141208

REACTIONS (2)
  - Ascites [Unknown]
  - Localised intraabdominal fluid collection [Unknown]

NARRATIVE: CASE EVENT DATE: 2014
